FAERS Safety Report 9369416 (Version 1)
Quarter: 2013Q2

REPORT INFORMATION
  Report Type: Spontaneous
  Country: CN (occurrence: CN)
  Receive Date: 20130626
  Receipt Date: 20130626
  Transmission Date: 20140414
  Serious: Yes (Hospitalization)
  Sender: FDA-Public Use
  Company Number: CN-COVIDIEN/TYCO HEALTHCARE/MALLINCKRODT-T201303444

PATIENT
  Age: 47 Year
  Sex: Male

DRUGS (1)
  1. OPTIRAY [Suspect]
     Indication: SCAN WITH CONTRAST
     Dosage: UNK, SINGLE
     Dates: start: 20130527, end: 20130527

REACTIONS (2)
  - Hypersensitivity [Recovering/Resolving]
  - Dyspnoea [Recovering/Resolving]
